FAERS Safety Report 24222716 (Version 3)
Quarter: 2024Q4

REPORT INFORMATION
  Report Type: Spontaneous
  Country: JP (occurrence: JP)
  Receive Date: 20240819
  Receipt Date: 20241008
  Transmission Date: 20250115
  Serious: Yes (Other)
  Sender: MYLAN
  Company Number: JP-VIATRISJAPAN-2024M1074298AA

PATIENT
  Age: 85 Year
  Sex: Female
  Weight: 50 kg

DRUGS (8)
  1. CELECOXIB [Suspect]
     Active Substance: CELECOXIB
     Indication: Procedural pain
     Dosage: 200 MILLIGRAM, BID
     Route: 048
     Dates: start: 20240802, end: 20240807
  2. CELECOXIB [Suspect]
     Active Substance: CELECOXIB
     Dosage: 100 MILLIGRAM, BID
     Route: 048
     Dates: start: 20240808, end: 20240815
  3. HERBESSER [Concomitant]
     Active Substance: DILTIAZEM HYDROCHLORIDE
     Indication: Product used for unknown indication
     Dosage: UNK
     Route: 048
     Dates: start: 20240711
  4. VONOPRAZAN FUMARATE [Concomitant]
     Active Substance: VONOPRAZAN FUMARATE
     Indication: Product used for unknown indication
     Dosage: UNK
     Route: 048
     Dates: start: 20240711
  5. MICARDIS [Concomitant]
     Active Substance: TELMISARTAN
     Indication: Product used for unknown indication
     Dosage: UNK
     Route: 048
     Dates: start: 20240711
  6. CARVEDILOL [Concomitant]
     Active Substance: CARVEDILOL
     Indication: Product used for unknown indication
     Dosage: UNK
     Route: 048
     Dates: start: 20240711
  7. LIPITOR [Concomitant]
     Active Substance: ATORVASTATIN CALCIUM
     Indication: Product used for unknown indication
     Dosage: UNK
     Route: 048
     Dates: start: 20240711
  8. NIFEDIPINE [Concomitant]
     Active Substance: NIFEDIPINE
     Indication: Product used for unknown indication
     Dosage: UNK
     Route: 048
     Dates: start: 20240711

REACTIONS (1)
  - Hallucination [Recovering/Resolving]

NARRATIVE: CASE EVENT DATE: 20240802
